FAERS Safety Report 8176427-1 (Version None)
Quarter: 2012Q1

REPORT INFORMATION
  Report Type: 
  Country: None (occurrence: None)
  Receive Date: 20120301
  Receipt Date: 20120221
  Transmission Date: 20120608
  Serious: Yes (Hospitalization, Other)
  Sender: FDA-Public Use
  Company Number: US-SANOFI-AVENTIS-2012SA010691

PATIENT
  Age: 50 Year
  Sex: Male
  Weight: 78.5 kg

DRUGS (14)
  1. ELOXATIN [Suspect]
     Indication: COLON CANCER STAGE III
     Route: 041
  2. FLUOROURACIL [Suspect]
  3. ELOXATIN [Suspect]
     Route: 041
  4. ELOXATIN [Suspect]
     Route: 041
     Dates: start: 20120212, end: 20120212
  5. ELOXATIN [Suspect]
     Route: 041
  6. ELOXATIN [Suspect]
     Route: 041
     Dates: start: 20120118, end: 20120118
  7. ELOXATIN [Suspect]
     Route: 041
  8. ELOXATIN [Suspect]
     Route: 041
  9. LEUCOVORIN CALCIUM [Suspect]
  10. ELOXATIN [Suspect]
     Route: 041
  11. ALL OTHER THERAPEUTIC PRODUCTS [Suspect]
  12. ELOXATIN [Suspect]
     Route: 041
  13. ELOXATIN [Suspect]
     Route: 041
  14. ELOXATIN [Suspect]
     Route: 041
     Dates: start: 20120104, end: 20120104

REACTIONS (4)
  - OXYGEN SATURATION DECREASED [None]
  - UNEVALUABLE EVENT [None]
  - DYSPNOEA [None]
  - ACUTE RESPIRATORY DISTRESS SYNDROME [None]
